FAERS Safety Report 16584876 (Version 1)
Quarter: 2019Q3

REPORT INFORMATION
  Report Type: Spontaneous
  Country: NL (occurrence: NL)
  Receive Date: 20190717
  Receipt Date: 20190717
  Transmission Date: 20191004
  Serious: Yes (Hospitalization)
  Sender: FDA-Public Use
  Company Number: NL-BAYER-2019-132493

PATIENT
  Age: 69 Year
  Sex: Female
  Weight: 70 kg

DRUGS (3)
  1. GADOVIST [Suspect]
     Active Substance: GADOBUTROL
     Indication: NUCLEAR MAGNETIC RESONANCE IMAGING
     Dosage: 1 DF, UNK
  2. THYRAX DUO [Concomitant]
     Active Substance: LEVOTHYROXINE SODIUM
     Dosage: UNK
  3. MARCOUMAR [Concomitant]
     Active Substance: PHENPROCOUMON
     Dosage: UNK

REACTIONS (6)
  - Respiratory rate increased [Recovered/Resolved with Sequelae]
  - Liver disorder [Recovered/Resolved with Sequelae]
  - Heart rate increased [Recovered/Resolved with Sequelae]
  - Renal disorder [Recovered/Resolved with Sequelae]
  - Respiratory arrest [Recovered/Resolved with Sequelae]
  - Coma [Recovered/Resolved with Sequelae]

NARRATIVE: CASE EVENT DATE: 20190129
